FAERS Safety Report 9451222 (Version 1)
Quarter: 2013Q3

REPORT INFORMATION
  Report Type: Spontaneous
  Country: JP (occurrence: JP)
  Receive Date: 20130809
  Receipt Date: 20130809
  Transmission Date: 20140515
  Serious: Yes (Other)
  Sender: FDA-Public Use
  Company Number: JP-TEVA-423383ISR

PATIENT
  Age: 30 Year
  Sex: Male

DRUGS (13)
  1. WARFARIN [Suspect]
     Indication: CONGESTIVE CARDIOMYOPATHY
     Dosage: 4 MILLIGRAM DAILY;
     Route: 065
  2. LEVOFLOXACIN [Interacting]
     Indication: URINARY TRACT INFECTION
     Dosage: 900 MILLIGRAM DAILY;
     Route: 065
  3. ASPIRIN [Concomitant]
     Dosage: 100 MILLIGRAM DAILY;
     Route: 065
  4. DIGOXIN [Concomitant]
     Dosage: .25 MILLIGRAM DAILY;
     Route: 065
  5. ATENOLOL [Concomitant]
     Dosage: 50 MILLIGRAM DAILY;
     Route: 065
  6. GLIMEPIRIDE [Concomitant]
     Dosage: 4 MILLIGRAM DAILY;
     Route: 065
  7. VOGLIBOSE [Concomitant]
     Dosage: 2.7 MILLIGRAM DAILY;
     Route: 065
  8. ALLOPURINOL [Concomitant]
     Dosage: 900 MILLIGRAM DAILY;
     Route: 065
  9. MILNACIPRAN [Concomitant]
     Dosage: 25 MILLIGRAM DAILY;
     Route: 065
  10. FLUVOXAMINE [Concomitant]
     Dosage: 200 MILLIGRAM DAILY;
     Route: 065
  11. RISPERIDONE [Concomitant]
     Dosage: 2 MILLIGRAM DAILY;
     Route: 065
  12. SODIUM VALPROATE [Concomitant]
     Indication: ASPERGER^S DISORDER
     Dosage: 800 MILLIGRAM DAILY;
     Route: 065
  13. PIMOBENDAN [Concomitant]
     Dosage: 20 MILLIGRAM DAILY;

REACTIONS (4)
  - Coagulopathy [Unknown]
  - Renal failure acute [Recovered/Resolved]
  - Drug interaction [Recovered/Resolved]
  - Hypovolaemic shock [Unknown]
